FAERS Safety Report 8736468 (Version 3)
Quarter: 2012Q4

REPORT INFORMATION
  Report Type: 
  Country: US (occurrence: US)
  Receive Date: 20120822
  Receipt Date: 20121010
  Transmission Date: 20130627
  Serious: No
  Sender: FDA-Public Use
  Company Number: US-PFIZER INC-2012204700

PATIENT
  Age: 71 Year
  Sex: Female

DRUGS (3)
  1. QUINAPRIL HCL [Suspect]
     Indication: HYPERTENSION
     Dosage: 20 mg, 2x/day
     Dates: start: 201205, end: 201205
  2. ACCUPRIL [Suspect]
     Dosage: 40 mg, 1/2 tablet daily
  3. LIPITOR [Concomitant]
     Dosage: 10 mg, 1x/day

REACTIONS (3)
  - Drug ineffective [Unknown]
  - Chest pain [Unknown]
  - Abdominal discomfort [Recovered/Resolved]
